FAERS Safety Report 10460501 (Version 2)
Quarter: 2014Q3

REPORT INFORMATION
  Report Type: Spontaneous
  Country: GB (occurrence: GB)
  Receive Date: 20140918
  Receipt Date: 20140924
  Transmission Date: 20150326
  Serious: Yes (Disabling, Other)
  Sender: FDA-Public Use
  Company Number: GB-ABBVIE-14K-167-1283776-00

PATIENT
  Sex: Female

DRUGS (2)
  1. HUMIRA [Suspect]
     Active Substance: ADALIMUMAB
     Indication: PRODUCT USED FOR UNKNOWN INDICATION
  2. HUMIRA [Suspect]
     Active Substance: ADALIMUMAB
     Dates: start: 201408

REACTIONS (8)
  - Hip fracture [Recovering/Resolving]
  - Wound [Recovering/Resolving]
  - Hip arthroplasty [Unknown]
  - Walking aid user [Unknown]
  - Pain in extremity [Unknown]
  - Arthralgia [Unknown]
  - Joint swelling [Recovering/Resolving]
  - Wound infection [Recovering/Resolving]

NARRATIVE: CASE EVENT DATE: 2014
